FAERS Safety Report 21667907 (Version 1)
Quarter: 2022Q4

REPORT INFORMATION
  Report Type: Spontaneous
  Country: US (occurrence: None)
  Receive Date: 20221130
  Receipt Date: 20221130
  Transmission Date: 20230112
  Serious: No
  Sender: FDA-Public Use
  Company Number: None

PATIENT
  Age: 79 Year
  Sex: Male
  Weight: 69.75 kg

DRUGS (1)
  1. TRELEGY ELLIPTA [Suspect]
     Active Substance: FLUTICASONE FUROATE\UMECLIDINIUM BROMIDE\VILANTEROL TRIFENATATE
     Indication: Chronic obstructive pulmonary disease
     Dosage: OTHER STRENGTH : 200MCG/62.5MCG/25M;?OTHER QUANTITY : 30 INHALATION(S);?FREQUENCY : DAILY;?
     Route: 055
     Dates: start: 20221118, end: 20221124

REACTIONS (1)
  - Bronchitis [None]

NARRATIVE: CASE EVENT DATE: 20221124
